FAERS Safety Report 24622320 (Version 1)
Quarter: 2024Q4

REPORT INFORMATION
  Report Type: Spontaneous
  Country: US (occurrence: US)
  Receive Date: 20241115
  Receipt Date: 20241115
  Transmission Date: 20250115
  Serious: No
  Sender: GLENMARK
  Company Number: US-GLENMARK PHARMACEUTICALS-2024GMK093919

PATIENT

DRUGS (1)
  1. CICLOPIROX OLAMINE [Suspect]
     Active Substance: CICLOPIROX OLAMINE
     Indication: Ill-defined disorder
     Dosage: UNK, BID (TWICE A DAY)
     Route: 061

REACTIONS (4)
  - Skin burning sensation [Unknown]
  - Skin irritation [Unknown]
  - Drug ineffective [Unknown]
  - Product formulation issue [Unknown]
